FAERS Safety Report 6581343-2 (Version None)
Quarter: 2010Q1

REPORT INFORMATION
  Report Type: 
  Country: None (occurrence: None)
  Receive Date: 20100215
  Receipt Date: 20100202
  Transmission Date: 20100710
  Serious: Yes (Hospitalization)
  Sender: FDA-Public Use
  Company Number: JP-JNJFOC-20100204553

PATIENT
  Sex: Female

DRUGS (15)
  1. CRAVIT [Suspect]
     Indication: PHARYNGITIS
     Route: 048
  2. LASIX [Concomitant]
     Route: 048
  3. ARTIST [Concomitant]
     Route: 048
  4. NU LOTAN [Concomitant]
     Route: 048
  5. TAKEPRON [Concomitant]
     Route: 048
  6. ALLOZYM [Concomitant]
     Route: 048
  7. FERROMIA [Concomitant]
     Route: 048
  8. DOGMATYL [Concomitant]
     Route: 048
  9. DEPAS [Concomitant]
     Route: 048
  10. BUSCOPAN [Concomitant]
     Route: 048
  11. LOXONIN [Concomitant]
     Route: 048
  12. MYSLEE [Concomitant]
     Route: 048
  13. WARFARIN [Concomitant]
     Route: 048
  14. ACTONEL [Concomitant]
     Route: 048
  15. FRANDOL [Concomitant]
     Route: 062

REACTIONS (5)
  - COLD SWEAT [None]
  - DEPRESSED LEVEL OF CONSCIOUSNESS [None]
  - NAUSEA [None]
  - RENAL ATROPHY [None]
  - TREMOR [None]
